FAERS Safety Report 15929738 (Version 2)
Quarter: 2019Q1

REPORT INFORMATION
  Report Type: Spontaneous
  Country: US (occurrence: US)
  Receive Date: 20190206
  Receipt Date: 20190220
  Transmission Date: 20190417
  Serious: No
  Sender: FDA-Public Use
  Company Number: US-GILEAD-2019-0388294

PATIENT
  Age: 55 Year
  Sex: Female
  Weight: 80 kg

DRUGS (17)
  1. VITAMIN B COMPLEX [Concomitant]
     Active Substance: CYANOCOBALAMIN\DEXPANTHENOL\NIACINAMIDE\PYRIDOXINE HYDROCHLORIDE\RIBOFLAVIN 5^-PHOSPHATE SODIUM\THIAMINE HYDROCHLORIDE\VITAMIN B COMPLEX
  2. STOOL SOFTENER (DOCUSATE) [Concomitant]
     Active Substance: DOCUSATE
  3. JUBLIA [Concomitant]
     Active Substance: EFINACONAZOLE
  4. COMPLERA [Suspect]
     Active Substance: EMTRICITABINE\RILPIVIRINE HYDROCHLORIDE\TENOFOVIR DISOPROXIL FUMARATE
     Indication: HIV INFECTION
     Dosage: UNK
     Route: 065
     Dates: start: 201404, end: 20160403
  5. ATIVAN [Concomitant]
     Active Substance: LORAZEPAM
  6. TRAVATAN [Concomitant]
     Active Substance: TRAVOPROST
  7. FIBER [Concomitant]
     Active Substance: PSYLLIUM HUSK
  8. ALBUTEROL SULFATE. [Concomitant]
     Active Substance: ALBUTEROL SULFATE
  9. ABILIFY [Concomitant]
     Active Substance: ARIPIPRAZOLE
  10. RESTASIS [Concomitant]
     Active Substance: CYCLOSPORINE
  11. FLUNISOLIDE. [Concomitant]
     Active Substance: FLUNISOLIDE
  12. ESTER-C [ASCORBIC ACID;BIOFLAVONOIDS] [Concomitant]
  13. FIBERCON [Concomitant]
     Active Substance: CALCIUM POLYCARBOPHIL
  14. LAMICTAL [Concomitant]
     Active Substance: LAMOTRIGINE
  15. PROVENTIL HFA [Concomitant]
     Active Substance: ALBUTEROL SULFATE
  16. TRIUMEQ [Concomitant]
     Active Substance: ABACAVIR SULFATE\DOLUTEGRAVIR SODIUM\LAMIVUDINE
  17. WELLBUTRIN [Concomitant]
     Active Substance: BUPROPION HYDROCHLORIDE

REACTIONS (4)
  - Arthralgia [Not Recovered/Not Resolved]
  - Weight increased [Unknown]
  - Gastrointestinal disorder [Unknown]
  - Drug hypersensitivity [Unknown]
